FAERS Safety Report 5411282-1 (Version None)
Quarter: 2007Q3

REPORT INFORMATION
  Report Type: 
  Country: None (occurrence: None)
  Receive Date: 20070810
  Receipt Date: 20070801
  Transmission Date: 20080115
  Serious: Yes (Hospitalization)
  Sender: FDA-Public Use
  Company Number: AR-ROCHE-509903

PATIENT
  Sex: Male

DRUGS (3)
  1. CLONAZEPAM [Suspect]
     Indication: PHOBIA
     Route: 048
     Dates: start: 20010101
  2. CLONAZEPAM [Suspect]
     Route: 048
  3. MORPHINE [Concomitant]
     Dates: start: 20070101

REACTIONS (7)
  - CATHETER RELATED INFECTION [None]
  - DRUG WITHDRAWAL SYNDROME [None]
  - EUPHORIC MOOD [None]
  - INCOHERENT [None]
  - PYREXIA [None]
  - TONGUE NEOPLASM MALIGNANT STAGE UNSPECIFIED [None]
  - TREMOR [None]
